FAERS Safety Report 20330251 (Version 2)
Quarter: 2022Q2

REPORT INFORMATION
  Report Type: Spontaneous
  Country: CA (occurrence: CA)
  Receive Date: 20220113
  Receipt Date: 20220531
  Transmission Date: 20220721
  Serious: Yes (Death, Other)
  Sender: FDA-Public Use
  Company Number: None

PATIENT

DRUGS (49)
  1. HYDROXYCHLOROQUINE [Suspect]
     Active Substance: HYDROXYCHLOROQUINE
     Route: 064
  2. METHOTREXATE [Suspect]
     Active Substance: METHOTREXATE
     Dosage: 1 EVERY 1 WEEKS
     Route: 064
  3. ALENDRONIC ACID [Suspect]
     Active Substance: ALENDRONIC ACID
     Route: 064
  4. ORENCIA [Suspect]
     Active Substance: ABATACEPT
     Route: 064
  5. ACETAMINOPHEN [Suspect]
     Active Substance: ACETAMINOPHEN
     Route: 064
  6. ACTEMRA [Suspect]
     Active Substance: TOCILIZUMAB
     Route: 064
  7. ADALIMUMAB [Suspect]
     Active Substance: ADALIMUMAB
     Dosage: SOLUTION SUBCUTANEOUS
     Route: 064
  8. APREMILAST [Suspect]
     Active Substance: APREMILAST
     Route: 064
  9. PREDNISONE [Suspect]
     Active Substance: PREDNISONE
     Route: 064
  10. ARAVA [Suspect]
     Active Substance: LEFLUNOMIDE
     Route: 064
  11. CETIRIZINE HYDROCHLORIDE [Suspect]
     Active Substance: CETIRIZINE HYDROCHLORIDE
     Route: 064
  12. CIMZIA [Suspect]
     Active Substance: CERTOLIZUMAB PEGOL
     Route: 064
  13. CORTISONE ACETATE [Suspect]
     Active Substance: CORTISONE ACETATE
     Route: 064
  14. DESOXIMETASONE [Suspect]
     Active Substance: DESOXIMETASONE
     Route: 064
  15. DICLOFENAC [Suspect]
     Active Substance: DICLOFENAC
     Route: 064
  16. DICLOFENAC SODIUM [Suspect]
     Active Substance: DICLOFENAC SODIUM
     Dosage: 1 EVERY 1 DAYS
     Route: 064
  17. DIPHENHYDRAMINE HYDROCHLORIDE [Suspect]
     Active Substance: DIPHENHYDRAMINE HYDROCHLORIDE
     Route: 064
  18. ENBREL [Suspect]
     Active Substance: ETANERCEPT
     Dosage: 1 EVERY 1 WEEKS
     Route: 064
  19. ERELZI [Suspect]
     Active Substance: ETANERCEPT-SZZS
     Route: 064
  20. FOLIC ACID [Suspect]
     Active Substance: FOLIC ACID
     Route: 064
  21. FOSAMAX [Suspect]
     Active Substance: ALENDRONATE SODIUM
     Route: 064
  22. GOLIMUMAB [Suspect]
     Active Substance: GOLIMUMAB
     Route: 064
  23. HUMIRA [Suspect]
     Active Substance: ADALIMUMAB
     Route: 064
  24. HYDROCORTISONE ACETATE [Suspect]
     Active Substance: HYDROCORTISONE ACETATE
     Route: 064
  25. LEFLUNOMIDE [Suspect]
     Active Substance: LEFLUNOMIDE
     Route: 064
  26. PHTHALYLSULFATHIAZOLE [Suspect]
     Active Substance: PHTHALYLSULFATHIAZOLE
     Route: 064
  27. PREDNISONE [Suspect]
     Active Substance: PREDNISONE
     Route: 064
  28. PSEUDOEPHEDRINE HYDROCHLORIDE [Suspect]
     Active Substance: PSEUDOEPHEDRINE HYDROCHLORIDE
     Route: 064
  29. CETIRIZINE HYDROCHLORIDE\PSEUDOEPHEDRINE HYDROCHLORIDE [Suspect]
     Active Substance: CETIRIZINE HYDROCHLORIDE\PSEUDOEPHEDRINE HYDROCHLORIDE
     Route: 064
  30. REMICADE [Suspect]
     Active Substance: INFLIXIMAB
     Dosage: POWDER FOR SOLUTION INTRAVENOUS
     Route: 064
  31. RITUXIMAB [Suspect]
     Active Substance: RITUXIMAB
     Route: 064
  32. KEVZARA [Suspect]
     Active Substance: SARILUMAB
     Route: 064
  33. SIMPONI [Suspect]
     Active Substance: GOLIMUMAB
     Route: 064
  34. SOLU-MEDROL [Suspect]
     Active Substance: METHYLPREDNISOLONE SODIUM SUCCINATE
     Route: 064
  35. STELARA [Suspect]
     Active Substance: USTEKINUMAB
     Dosage: SOLUTION SUBCUTANEOUS
     Route: 064
  36. SULFASALAZINE [Suspect]
     Active Substance: SULFASALAZINE
     Dosage: 2 EVERY 1 DAYS
     Route: 064
  37. TOCILIZUMAB [Suspect]
     Active Substance: TOCILIZUMAB
     Route: 064
  38. XELJANZ [Suspect]
     Active Substance: TOFACITINIB CITRATE
     Route: 064
  39. PREDNISONE [Suspect]
     Active Substance: PREDNISONE
     Route: 064
  40. CETIRIZINE HYDROCHLORIDE\PSEUDOEPHEDRINE HYDROCHLORIDE [Suspect]
     Active Substance: CETIRIZINE HYDROCHLORIDE\PSEUDOEPHEDRINE HYDROCHLORIDE
     Route: 064
  41. CODEINE [Concomitant]
     Active Substance: CODEINE
     Route: 064
  42. CAFFEINE CITRATE [Concomitant]
     Active Substance: CAFFEINE CITRATE
     Route: 064
  43. DICLOFENAC POTASSIUM [Concomitant]
     Active Substance: DICLOFENAC POTASSIUM
     Route: 065
  44. IBUPROFEN [Concomitant]
     Active Substance: IBUPROFEN
     Route: 064
  45. LISINOPRIL [Concomitant]
     Active Substance: LISINOPRIL
     Route: 064
  46. SULFASALAZINE [Concomitant]
     Active Substance: SULFASALAZINE
     Route: 064
  47. TOFACITINIB [Concomitant]
     Active Substance: TOFACITINIB
     Route: 064
  48. VITAMIN D3 [Concomitant]
     Active Substance: CHOLECALCIFEROL
     Route: 064
  49. ACETAMINOPHEN [Concomitant]
     Active Substance: ACETAMINOPHEN
     Route: 064

REACTIONS (2)
  - Death neonatal [Fatal]
  - Foetal exposure during pregnancy [Fatal]
